FAERS Safety Report 19187390 (Version 1)
Quarter: 2021Q2

REPORT INFORMATION
  Report Type: Spontaneous
  Country: US (occurrence: US)
  Receive Date: 20210427
  Receipt Date: 20210427
  Transmission Date: 20210717
  Serious: No
  Sender: FDA-Public Use
  Company Number: US-SUNOVION-2021SUN001403

PATIENT
  Sex: Female

DRUGS (2)
  1. LATUDA [Suspect]
     Active Substance: LURASIDONE HYDROCHLORIDE
     Indication: BIPOLAR DISORDER
     Dosage: 60 MG, QD
     Route: 048
     Dates: start: 201912
  2. CYMBALTA [Concomitant]
     Active Substance: DULOXETINE HYDROCHLORIDE
     Dosage: 30 MG

REACTIONS (7)
  - Tremor [Recovered/Resolved]
  - Mania [Recovered/Resolved]
  - Product administration error [Unknown]
  - Tinnitus [Recovered/Resolved]
  - Depressive symptom [Recovered/Resolved]
  - Thinking abnormal [Recovered/Resolved]
  - Delusion [Recovered/Resolved]
